FAERS Safety Report 9507367 (Version 1)
Quarter: 2013Q3

REPORT INFORMATION
  Report Type: Spontaneous
  Country: US (occurrence: None)
  Receive Date: 20130906
  Receipt Date: 20130906
  Transmission Date: 20140515
  Serious: Yes (Death)
  Sender: FDA-Public Use
  Company Number: None

PATIENT
  Age: 7 Year
  Sex: Male
  Weight: 21.1 kg

DRUGS (8)
  1. REMICADE [Suspect]
  2. ACETAMINOPHEN [Concomitant]
  3. BLASALAZIDE [Concomitant]
  4. DIPHENHYDRAMINE [Concomitant]
  5. FERROUS SULFATE [Concomitant]
  6. HYDROCORTISONE [Concomitant]
  7. MERCAPTOPURINE [Concomitant]
  8. VANCOMYCIN [Concomitant]

REACTIONS (14)
  - Flushing [None]
  - Headache [None]
  - Vomiting [None]
  - Flushing [None]
  - Unresponsive to stimuli [None]
  - Hypotension [None]
  - Hypersensitivity [None]
  - Miosis [None]
  - Brain death [None]
  - Skin discolouration [None]
  - Respiratory disorder [None]
  - Body temperature decreased [None]
  - Heart rate increased [None]
  - Oxygen saturation decreased [None]
